FAERS Safety Report 25435804 (Version 1)
Quarter: 2025Q2

REPORT INFORMATION
  Report Type: Spontaneous
  Country: US (occurrence: None)
  Receive Date: 20250612
  Receipt Date: 20250612
  Transmission Date: 20250717
  Serious: Yes (Hospitalization)
  Sender: FDA-CTU
  Company Number: None

PATIENT
  Age: 41 Year
  Sex: Female
  Weight: 79 kg

DRUGS (2)
  1. FERUMOXYTOL [Suspect]
     Active Substance: FERUMOXYTOL
     Indication: Iron deficiency anaemia
     Route: 042
     Dates: start: 20250612, end: 20250612
  2. Ferumoxytol Injection [Concomitant]
     Dates: start: 20250612, end: 20250612

REACTIONS (2)
  - Infusion related reaction [None]
  - Lip swelling [None]

NARRATIVE: CASE EVENT DATE: 20250612
